FAERS Safety Report 8377199-8 (Version None)
Quarter: 2012Q2

REPORT INFORMATION
  Report Type: 
  Country: None (occurrence: None)
  Receive Date: 20120522
  Receipt Date: 20120511
  Transmission Date: 20120825
  Serious: Yes (Other)
  Sender: FDA-Public Use
  Company Number: GB-TEVA-337463ISR

PATIENT
  Sex: Male
  Weight: 90 kg

DRUGS (10)
  1. OMEPRAZOLE [Concomitant]
  2. XARELTO [Concomitant]
  3. AMLODIPINE BESYLATE [Concomitant]
     Dosage: 5 MG, UNK
  4. DAPTOMYCIN [Suspect]
     Indication: ARTHROPATHY
     Dosage: 700 MG, UNK
     Route: 042
     Dates: start: 20120110, end: 20120113
  5. LISINOPRIL [Concomitant]
     Dosage: 20 MG, UNK
  6. CODEINE SULFATE [Concomitant]
     Dosage: 60 MG, UNK
     Dates: start: 20120110
  7. ENOXAPARIN [Concomitant]
     Dosage: 20 MG, UNK
     Dates: start: 20120110
  8. PREDNISOLONE [Concomitant]
     Indication: POLYMYALGIA RHEUMATICA
     Dosage: 5 MG, UNK
     Route: 048
  9. LEVOFLOXACIN [Suspect]
  10. ACETAMINOPHEN [Concomitant]
     Dosage: 1 G, UNK

REACTIONS (5)
  - LOWER RESPIRATORY TRACT INFECTION [None]
  - DYSPNOEA [None]
  - C-REACTIVE PROTEIN INCREASED [None]
  - PYREXIA [None]
  - PNEUMONIA [None]
